FAERS Safety Report 11937839 (Version 4)
Quarter: 2016Q2

REPORT INFORMATION
  Report Type: Report from Study
  Country: FR (occurrence: FR)
  Receive Date: 20160122
  Receipt Date: 20160512
  Transmission Date: 20160815
  Serious: Yes (Hospitalization)
  Sender: FDA-Public Use
  Company Number: FR-ROCHE-1697494

PATIENT
  Age: 73 Year
  Sex: Male
  Weight: 67 kg

DRUGS (11)
  1. LEVOTHYROX [Concomitant]
     Active Substance: LEVOTHYROXINE
     Route: 065
     Dates: start: 2007
  2. CAPECITABINE. [Suspect]
     Active Substance: CAPECITABINE
     Indication: OESOPHAGEAL ADENOCARCINOMA
     Dosage: DAY 1-14?LAST DOSE PRIOR TO SAE: 30/NOV/2015
     Route: 048
     Dates: start: 20150928
  3. CAPECITABINE. [Suspect]
     Active Substance: CAPECITABINE
     Route: 048
     Dates: start: 20151130, end: 20151230
  4. CISPLATIN. [Suspect]
     Active Substance: CISPLATIN
     Dosage: DOSE REDUCED DUE TO ASTHENIA?LAST DOSE PRIOR TO SAE
     Route: 042
     Dates: start: 20151130, end: 20151230
  5. CISPLATIN. [Suspect]
     Active Substance: CISPLATIN
     Indication: OESOPHAGEAL ADENOCARCINOMA
     Dosage: DAY 1
     Route: 042
     Dates: start: 20150928
  6. CISPLATIN. [Suspect]
     Active Substance: CISPLATIN
     Dosage: DOSE REDUCED DUE TO NAUSEA
     Route: 042
     Dates: start: 20151019
  7. LEVOXYL [Concomitant]
     Active Substance: LEVOTHYROXINE SODIUM
     Route: 065
     Dates: start: 201501
  8. SERETIDE [Concomitant]
     Active Substance: FLUTICASONE PROPIONATE\SALMETEROL XINAFOATE
     Route: 065
     Dates: start: 2000
  9. CLARYTINE [Concomitant]
     Route: 065
     Dates: start: 2000
  10. CAPECITABINE. [Suspect]
     Active Substance: CAPECITABINE
     Route: 048
     Dates: start: 20151019
  11. URBANYL [Concomitant]
     Active Substance: CLOBAZAM
     Route: 065
     Dates: start: 2015

REACTIONS (1)
  - General physical health deterioration [Recovered/Resolved]

NARRATIVE: CASE EVENT DATE: 20151230
